FAERS Safety Report 6600669-7 (Version None)
Quarter: 2010Q1

REPORT INFORMATION
  Report Type: 
  Country: None (occurrence: None)
  Receive Date: 20100223
  Receipt Date: 20100223
  Transmission Date: 20100710
  Serious: Yes (Other)
  Sender: FDA-Public Use
  Company Number: None

PATIENT
  Age: 88 Year
  Sex: Male
  Weight: 72.5755 kg

DRUGS (1)
  1. LOVASTATIN [Suspect]
     Indication: MYOCARDIAL INFARCTION
     Dosage: 20 MG HS PO 10 YEARS

REACTIONS (3)
  - DRY MOUTH [None]
  - NASAL DRYNESS [None]
  - NIGHTMARE [None]
